FAERS Safety Report 23828142 (Version 5)
Quarter: 2024Q4

REPORT INFORMATION
  Report Type: Report from Study
  Country: MX (occurrence: MX)
  Receive Date: 20240507
  Receipt Date: 20241122
  Transmission Date: 20250115
  Serious: Yes (Hospitalization, Other)
  Sender: TAKEDA
  Company Number: MX-TAKEDA-2023TUS017574

PATIENT
  Age: 9 Year
  Sex: Male

DRUGS (4)
  1. ICATIBANT [Suspect]
     Active Substance: ICATIBANT ACETATE
     Indication: Hereditary angioedema
     Dosage: 30 MILLIGRAM
  2. ICATIBANT [Suspect]
     Active Substance: ICATIBANT ACETATE
     Dosage: 15 MILLIGRAM
  3. ICATIBANT [Suspect]
     Active Substance: ICATIBANT ACETATE
     Dosage: UNK
  4. ICATIBANT [Suspect]
     Active Substance: ICATIBANT ACETATE
     Dosage: UNK

REACTIONS (20)
  - Malocclusion [Recovered/Resolved]
  - Speech disorder [Recovered/Resolved]
  - Appendicitis [Recovering/Resolving]
  - Administration site pain [Recovered/Resolved]
  - Papule [Unknown]
  - Anxiety [Unknown]
  - Pain in extremity [Unknown]
  - Joint injury [Unknown]
  - Urticaria [Unknown]
  - Vomiting [Recovering/Resolving]
  - Varicella [Recovering/Resolving]
  - Epistaxis [Recovering/Resolving]
  - Pallor [Recovering/Resolving]
  - Insomnia [Recovering/Resolving]
  - Ear infection [Unknown]
  - Discouragement [Not Recovered/Not Resolved]
  - Depressed mood [Not Recovered/Not Resolved]
  - Abdominal pain [Recovering/Resolving]
  - Nausea [Recovering/Resolving]
  - Dizziness [Recovering/Resolving]

NARRATIVE: CASE EVENT DATE: 20240418
